FAERS Safety Report 7751650-6 (Version None)
Quarter: 2011Q3

REPORT INFORMATION
  Report Type: 
  Country: None (occurrence: None)
  Receive Date: 20110914
  Receipt Date: 20110912
  Transmission Date: 20111222
  Serious: Yes (Hospitalization, Disabling)
  Sender: FDA-Public Use
  Company Number: US-MERCK-1103USA03206

PATIENT
  Age: 62 Year
  Sex: Female

DRUGS (18)
  1. PREDNISONE [Concomitant]
     Route: 065
  2. DAYPRO [Concomitant]
     Route: 065
     Dates: start: 20100201
  3. FOSAMAX [Suspect]
     Indication: OSTEOPENIA
     Route: 048
     Dates: start: 19971101, end: 20100224
  4. FOSAMAX [Suspect]
     Indication: OSTEOPOROSIS PROPHYLAXIS
     Route: 048
     Dates: start: 19971101, end: 20100224
  5. IBUPROFEN [Concomitant]
     Route: 065
  6. OMEGA-3 MARINE TRIGLYCERIDES [Concomitant]
     Route: 065
     Dates: start: 20100101
  7. PREMARIN [Concomitant]
     Route: 067
  8. OSTEO-BI-FLEX [Concomitant]
     Route: 048
     Dates: start: 19900101
  9. HOMEOPATHIC MEDICATIONS (UNSPECIFIED) [Concomitant]
     Route: 065
  10. VITAMINS (UNSPECIFIED) [Concomitant]
     Route: 065
     Dates: start: 19900101
  11. CALCIUM (UNSPECIFIED) AND VITAMIN D (UNSPECIFIED) [Concomitant]
     Route: 065
     Dates: start: 19900101
  12. HORMONES (UNSPECIFIED) [Concomitant]
     Route: 065
     Dates: start: 19880101, end: 20090101
  13. ALENDRONATE SODIUM [Suspect]
     Route: 048
     Dates: start: 20091212
  14. ALENDRONATE SODIUM [Suspect]
     Indication: OSTEOPENIA
     Route: 048
     Dates: start: 20090407, end: 20090901
  15. CORTICOSTEROIDS (UNSPECIFIED) [Concomitant]
     Route: 065
     Dates: start: 19990101, end: 20090101
  16. VAGIFEM [Concomitant]
     Route: 067
  17. FLUTICASONE [Concomitant]
     Route: 065
     Dates: start: 20100201
  18. [THERAPY UNSPECIFIED] [Concomitant]
     Route: 065
     Dates: start: 19940101, end: 20040101

REACTIONS (20)
  - FIBROCYSTIC BREAST DISEASE [None]
  - DRUG INEFFECTIVE [None]
  - SCIATICA [None]
  - TOOTH DISORDER [None]
  - ROTATOR CUFF SYNDROME [None]
  - FEMUR FRACTURE [None]
  - LOW TURNOVER OSTEOPATHY [None]
  - ANAEMIA POSTOPERATIVE [None]
  - SCOLIOSIS [None]
  - TONSILLAR DISORDER [None]
  - OSTEOARTHRITIS [None]
  - CARPAL TUNNEL SYNDROME [None]
  - POLYMYALGIA RHEUMATICA [None]
  - OSTEOPOROSIS [None]
  - GINGIVAL RECESSION [None]
  - MERALGIA PARAESTHETICA [None]
  - STRESS FRACTURE [None]
  - LYMPHADENOPATHY [None]
  - VIRAL UPPER RESPIRATORY TRACT INFECTION [None]
  - RHINITIS ALLERGIC [None]
